FAERS Safety Report 10885153 (Version 1)
Quarter: 2015Q1

REPORT INFORMATION
  Report Type: Report from Study
  Country: PL (occurrence: PL)
  Receive Date: 20150304
  Receipt Date: 20150304
  Transmission Date: 20150721
  Serious: Yes (Death, Hospitalization)
  Sender: FDA-Public Use
  Company Number: PL-ASTRAZENECA-2015SE15692

PATIENT
  Age: 12165 Day
  Sex: Male
  Weight: 56 kg

DRUGS (14)
  1. EUTHYROX [Concomitant]
     Active Substance: LEVOTHYROXINE SODIUM
     Indication: HYPOTHYROIDISM
     Route: 048
     Dates: start: 20140410
  2. GRANUFLEX [Concomitant]
     Indication: FISTULA
     Dosage: AS REQUIRED
     Route: 003
     Dates: start: 20140715
  3. NEOMAG B6N [Concomitant]
     Indication: BLOOD MAGNESIUM DECREASED
     Dosage: DAILY
     Route: 048
     Dates: start: 20130115
  4. ALLEVYN ADHESIVE [Concomitant]
     Indication: FISTULA
     Dosage: EVERY 72 HOURS
     Route: 003
     Dates: start: 20140715
  5. VANDETANIB. [Suspect]
     Active Substance: VANDETANIB
     Indication: MEDULLARY THYROID CANCER
     Dosage: OPEN LABEL PHASE
     Route: 048
     Dates: start: 20140116, end: 20140714
  6. CALCIUM CARBONATE. [Concomitant]
     Active Substance: CALCIUM CARBONATE
     Indication: HYPOCALCAEMIA
     Route: 048
     Dates: end: 20121211
  7. CALCIUM CARBONATE. [Concomitant]
     Active Substance: CALCIUM CARBONATE
     Indication: HYPOCALCAEMIA
     Route: 048
     Dates: start: 20121212
  8. VANDETANIB. [Suspect]
     Active Substance: VANDETANIB
     Indication: MEDULLARY THYROID CANCER
     Dosage: QID, BLINDED PHASE
     Route: 048
     Dates: start: 20121121, end: 20140115
  9. ALFADIOL [Concomitant]
     Active Substance: ALFACALCIDOL
     Indication: HYPOCALCAEMIA
     Route: 048
     Dates: start: 20131023
  10. OCTENISPET [Concomitant]
     Indication: FISTULA
     Route: 003
     Dates: start: 20140702
  11. VANDETANIB. [Suspect]
     Active Substance: VANDETANIB
     Indication: MEDULLARY THYROID CANCER
     Dosage: OPEN LABEL PHASE
     Route: 048
     Dates: start: 20140822
  12. VANDETANIB. [Suspect]
     Active Substance: VANDETANIB
     Indication: MEDULLARY THYROID CANCER
     Dosage: REDUCED DOSE
     Route: 048
     Dates: start: 20140927, end: 20150209
  13. KALIUM EFFERVESCENS [Concomitant]
     Indication: BLOOD POTASSIUM DECREASED
     Route: 048
     Dates: start: 20130115
  14. NACL [Concomitant]
     Active Substance: SODIUM CHLORIDE
     Indication: FISTULA
     Route: 003
     Dates: start: 20140715

REACTIONS (1)
  - Post procedural haemorrhage [Fatal]

NARRATIVE: CASE EVENT DATE: 20150209
